FAERS Safety Report 5895584-0 (Version None)
Quarter: 2008Q3

REPORT INFORMATION
  Report Type: 
  Country: None (occurrence: None)
  Receive Date: 20080924
  Receipt Date: 20080320
  Transmission Date: 20090109
  Serious: No
  Sender: FDA-Public Use
  Company Number: US-ASTRAZENECA-2006UW08203

PATIENT
  Age: 39 Year
  Sex: Male
  Weight: 127.9 kg

DRUGS (1)
  1. SEROQUEL [Suspect]
     Indication: SLEEP DISORDER
     Route: 048
     Dates: start: 20031211, end: 20040520

REACTIONS (2)
  - DIABETES MELLITUS [None]
  - OBESITY [None]
